FAERS Safety Report 18286336 (Version 1)
Quarter: 2020Q3

REPORT INFORMATION
  Report Type: Spontaneous
  Country: US (occurrence: US)
  Receive Date: 20200920
  Receipt Date: 20200920
  Transmission Date: 20201103
  Serious: Yes (Hospitalization)
  Sender: FDA-Public Use
  Company Number: US-PERRIGO-20US013261

PATIENT
  Age: 39 Year
  Sex: Male

DRUGS (1)
  1. CLOTRIMAZOLE. [Suspect]
     Active Substance: CLOTRIMAZOLE
     Indication: ORAL CANDIDIASIS
     Dosage: 10 MG, 5 TIMES DAILY
     Route: 048

REACTIONS (5)
  - Cholecystitis [Recovered/Resolved with Sequelae]
  - Abnormal loss of weight [Unknown]
  - Jaundice cholestatic [Recovered/Resolved]
  - Hepatitis cholestatic [Recovered/Resolved]
  - Decreased appetite [Unknown]
